FAERS Safety Report 24840893 (Version 1)
Quarter: 2025Q1

REPORT INFORMATION
  Report Type: Report from Study
  Country: HN (occurrence: HN)
  Receive Date: 20250114
  Receipt Date: 20250114
  Transmission Date: 20250409
  Serious: Yes (Other)
  Sender: BAYER HEALTHCARE PHARMACEUTICALS INC.
  Company Number: HN-BAYER-2025A003321

PATIENT
  Age: 53 Year
  Sex: Female

DRUGS (1)
  1. NEXAVAR [Suspect]
     Active Substance: SORAFENIB
     Indication: Thyroid cancer metastatic
     Dates: start: 20240110, end: 20241121

REACTIONS (3)
  - Vocal cord paralysis [Recovering/Resolving]
  - Stomatitis [Recovering/Resolving]
  - Urticaria [Recovering/Resolving]
